FAERS Safety Report 13773173 (Version 2)
Quarter: 2017Q3

REPORT INFORMATION
  Report Type: Report from Study
  Country: US (occurrence: US)
  Receive Date: 20170720
  Receipt Date: 20170724
  Transmission Date: 20171127
  Serious: Yes (Hospitalization)
  Sender: FDA-Public Use
  Company Number: US-SA-2017SA127328

PATIENT
  Age: 44 Year
  Sex: Female

DRUGS (2)
  1. LEMTRADA [Suspect]
     Active Substance: ALEMTUZUMAB
     Dosage: FREQUENCY: 2ND INFUSION 2/17
     Route: 041
  2. LEMTRADA [Suspect]
     Active Substance: ALEMTUZUMAB
     Dosage: FREQUENCY: 2ND INFUSION 2/17
     Route: 041

REACTIONS (3)
  - Platelet count decreased [Recovering/Resolving]
  - Immune thrombocytopenic purpura [Unknown]
  - Contusion [Unknown]

NARRATIVE: CASE EVENT DATE: 201707
